FAERS Safety Report 26102596 (Version 1)
Quarter: 2025Q4

REPORT INFORMATION
  Report Type: Report from Study
  Country: CA (occurrence: CA)
  Receive Date: 20251128
  Receipt Date: 20251128
  Transmission Date: 20260119
  Serious: Yes (Other)
  Sender: HLS THERAPEUTICS
  Company Number: CA-HLS-202503096

PATIENT
  Sex: Female

DRUGS (11)
  1. CLOZARIL [Suspect]
     Active Substance: CLOZAPINE
     Indication: Product used for unknown indication
     Dosage: QUANTITY: 10500 MG FOR 30 DAYS?REFILLS: 5, MAY 6, 2017
     Route: 048
     Dates: start: 20090917, end: 20251113
  2. ACETAMINOPHEN [Concomitant]
     Active Substance: ACETAMINOPHEN
     Dosage: 500 MG 1-2 TABLETS 3 TIMES DAILY FOR 30 DAYS
     Route: 065
  3. PROTOPIC [Suspect]
     Active Substance: TACROLIMUS
     Dosage: 1 APPLICATION 2 TIMES DAILY FOR 6 WEEKS
     Route: 065
  4. erdol [Concomitant]
     Dosage: 8288 U/ML 4 DROPS 1 TIME DAILY FOR 90 DAYS
     Route: 065
  5. SERTRALINE [Concomitant]
     Active Substance: SERTRALINE HYDROCHLORIDE
     Dosage: 100 MG 2 CAPSULES 1 TIME DAILY FOR 90
     Route: 065
  6. LEVOTHYROXINE [Concomitant]
     Active Substance: LEVOTHYROXINE
     Dosage: 88 MCG 1 TABLET 1 TIME DAILY FOR 90 DAYS
     Route: 065
  7. SENNOSIDES [Concomitant]
     Active Substance: SENNOSIDES
     Dosage: 8.6 MG 2 TABLETS EVERY EVENING
     Route: 065
  8. CLOTRIMAZOLE [Concomitant]
     Active Substance: CLOTRIMAZOLE
     Dosage: 2% HC COMPOUNDED QUANTITY: 60 GRAM(S)
     Route: 065
  9. peg 3350-electrolytes [Concomitant]
     Dosage: 17 GRAMS 1 TIME DAILY FOR 30 DAYS 17 G ONCE DAILY AS TOLERATED
     Route: 065
  10. EPIPEN [Concomitant]
     Active Substance: EPINEPHRINE
     Dosage: 1 APPLICATION ONE TIME ONLY
     Route: 065
  11. CEPHALEXIN [Concomitant]
     Active Substance: CEPHALEXIN
     Route: 065
     Dates: start: 201902

REACTIONS (9)
  - Hypertonic bladder [Unknown]
  - Cognitive disorder [Unknown]
  - Constipation [Unknown]
  - Depression [Unknown]
  - Hypothyroidism [Unknown]
  - Intertrigo [Unknown]
  - Urinary tract infection [Unknown]
  - Schizophrenia [Unknown]
  - Peripheral venous disease [Unknown]
